FAERS Safety Report 4315549-X (Version None)
Quarter: 2004Q1

REPORT INFORMATION
  Report Type: 
  Country: None (occurrence: None)
  Receive Date: 20040311
  Receipt Date: 20040304
  Transmission Date: 20041129
  Serious: Yes (Death)
  Sender: FDA-Public Use
  Company Number: PHEH2004US02679

PATIENT
  Age: 38 Year
  Sex: Male

DRUGS (7)
  1. CLOZARIL [Suspect]
     Indication: SCHIZOPHRENIA
     Dosage: 600 MG/DAY
     Route: 048
  2. CELEXA [Suspect]
  3. ATENOLOL [Concomitant]
  4. PREVACID [Concomitant]
  5. CARDURA [Concomitant]
  6. REGLAN                                  /USA/ [Concomitant]
  7. ZOCOR [Concomitant]

REACTIONS (5)
  - DRUG INTERACTION [None]
  - DRUG INTERACTION POTENTIATION [None]
  - EAR, NOSE AND THROAT EXAMINATION [None]
  - SLEEP APNOEA SYNDROME [None]
  - SUDDEN DEATH [None]
